FAERS Safety Report 6754637-5 (Version None)
Quarter: 2010Q2

REPORT INFORMATION
  Report Type: 
  Country: None (occurrence: None)
  Receive Date: 20100603
  Receipt Date: 20100529
  Transmission Date: 20101027
  Serious: Yes (Death)
  Sender: FDA-Public Use
  Company Number: US-CELGENEUS-163-20785-10060060

PATIENT
  Age: 70 Year
  Sex: Male
  Weight: 74.5 kg

DRUGS (6)
  1. THALOMID [Suspect]
     Route: 048
     Dates: start: 20100511, end: 20100527
  2. THALOMID [Suspect]
     Route: 048
     Dates: start: 20090728
  3. MELPHALAN HYDROCHLORIDE [Suspect]
     Route: 048
     Dates: start: 20090728, end: 20091023
  4. PREDNISONE TAB [Suspect]
     Route: 048
     Dates: start: 20100511, end: 20100514
  5. PREDNISONE TAB [Suspect]
     Route: 048
     Dates: start: 20090728
  6. ASPIRIN [Concomitant]
     Indication: DRUG USE FOR UNKNOWN INDICATION
     Route: 048
     Dates: start: 20090728

REACTIONS (1)
  - SUDDEN DEATH [None]
